FAERS Safety Report 5937700-8 (Version None)
Quarter: 2008Q4

REPORT INFORMATION
  Report Type: 
  Country: None (occurrence: None)
  Receive Date: 20081031
  Receipt Date: 20081020
  Transmission Date: 20090506
  Serious: Yes (Hospitalization)
  Sender: FDA-Public Use
  Company Number: FR-MERCK-0810FRA00073

PATIENT
  Age: 64 Year
  Sex: Female

DRUGS (5)
  1. JANUVIA [Suspect]
     Indication: TYPE 2 DIABETES MELLITUS
     Route: 048
     Dates: start: 20080601, end: 20080901
  2. BENFLUOREX HYDROCHLORIDE [Concomitant]
     Route: 048
  3. GLYBURIDE AND METFORMIN HYDROCHLORIDE [Concomitant]
     Indication: TYPE 2 DIABETES MELLITUS
     Route: 048
  4. BISOPROLOL FUMARATE [Concomitant]
     Indication: HYPERTENSION
     Route: 048
  5. ATORVASTATIN CALCIUM [Concomitant]
     Indication: DYSLIPIDAEMIA
     Route: 048

REACTIONS (3)
  - MALIGNANT PERITONEAL NEOPLASM [None]
  - PANCREATIC CARCINOMA [None]
  - RENAL COLIC [None]
